FAERS Safety Report 15273222 (Version 1)
Quarter: 2018Q3

REPORT INFORMATION
  Report Type: Report from Study
  Country: US (occurrence: US)
  Receive Date: 20180813
  Receipt Date: 20180813
  Transmission Date: 20181010
  Serious: Yes (Hospitalization, Other)
  Sender: FDA-Public Use
  Company Number: US-ACTELION-A-NJ2018-177177

PATIENT
  Age: 75 Year
  Sex: Female

DRUGS (8)
  1. ANUCORT?HC [Concomitant]
     Active Substance: HYDROCORTISONE ACETATE
  2. VENTOLIN HFA [Concomitant]
     Active Substance: ALBUTEROL SULFATE
  3. REVATIO [Concomitant]
     Active Substance: SILDENAFIL CITRATE
  4. XANAX [Concomitant]
     Active Substance: ALPRAZOLAM
  5. QVAR [Concomitant]
     Active Substance: BECLOMETHASONE DIPROPIONATE
  6. BUPROPION. [Concomitant]
     Active Substance: BUPROPION
     Route: 061
  7. OPSUMIT [Suspect]
     Active Substance: MACITENTAN
     Indication: PULMONARY ARTERIAL HYPERTENSION
     Dosage: 10 MG, QD
     Route: 048
     Dates: start: 201607
  8. SPIRONOLACTONE. [Concomitant]
     Active Substance: SPIRONOLACTONE

REACTIONS (2)
  - Gastrointestinal haemorrhage [Unknown]
  - Biopsy [Unknown]

NARRATIVE: CASE EVENT DATE: 20180718
